FAERS Safety Report 9609016 (Version 2)
Quarter: 2013Q4

REPORT INFORMATION
  Report Type: Spontaneous
  Country: BR (occurrence: BR)
  Receive Date: 20131009
  Receipt Date: 20131009
  Transmission Date: 20140711
  Serious: Yes (Other)
  Sender: FDA-Public Use
  Company Number: BR-ELI_LILLY_AND_COMPANY-BR201112005393

PATIENT
  Age: 82 Year
  Sex: Female
  Weight: 76 kg

DRUGS (13)
  1. HUMULIN N [Suspect]
     Indication: BLOOD GLUCOSE INCREASED
     Dosage: 30 IU, EACH MORNING
     Route: 058
     Dates: start: 2006
  2. HUMULIN N [Suspect]
     Dosage: 20 IU, EACH EVENING
     Route: 058
     Dates: start: 2006
  3. NOVOLIN N [Suspect]
     Dosage: 30 IU, QD
     Route: 058
     Dates: start: 20111118
  4. NOVOLIN N [Suspect]
     Dosage: 20 IU, QD
     Route: 058
     Dates: start: 20111118
  5. SINVASTATINA [Concomitant]
     Indication: BLOOD CHOLESTEROL
     Dosage: 10 MG, UNKNOWN
     Route: 065
  6. ZETIA [Concomitant]
     Indication: BLOOD CHOLESTEROL
     Dosage: 10 MG, UNKNOWN
     Route: 065
  7. BENZOFIBRATE [Concomitant]
     Indication: BLOOD CHOLESTEROL
     Dosage: 200 MG, UNKNOWN
     Route: 065
  8. CLOPIDOGREL [Concomitant]
     Indication: CAROTID ARTERY OCCLUSION
     Dosage: UNK, UNKNOWN
     Route: 065
  9. ACETYLSALICYLIC ACID [Concomitant]
     Indication: CARDIAC DISORDER
     Dosage: UNK, UNKNOWN
     Route: 065
  10. LOSARTAN [Concomitant]
     Indication: RENAL DISORDER
     Dosage: UNK, UNKNOWN
     Route: 065
  11. FUROSEMIDE [Concomitant]
     Indication: RENAL DISORDER
     Dosage: UNK, UNKNOWN
     Route: 065
  12. ATENOLOL [Concomitant]
     Indication: BLOOD PRESSURE
     Dosage: UNK, UNKNOWN
     Route: 065
  13. LEVOTIROXINA [Concomitant]
     Indication: THYROID DISORDER
     Dosage: UNK, UNKNOWN
     Route: 065

REACTIONS (5)
  - Glaucoma [Unknown]
  - Cataract [Unknown]
  - Blood glucose increased [Unknown]
  - Blood albumin increased [Unknown]
  - Urine albumin/creatinine ratio increased [Unknown]
